FAERS Safety Report 8852466 (Version 1)
Quarter: 2012Q4

REPORT INFORMATION
  Report Type: 
  Country: US (occurrence: US)
  Receive Date: 20121022
  Receipt Date: 20121022
  Transmission Date: 20130627
  Serious: Yes (Other)
  Sender: FDA-Public Use
  Company Number: US-MPIJNJ-2012-07252

PATIENT

DRUGS (7)
  1. VELCADE [Suspect]
     Indication: MULTIPLE MYELOMA
     Dosage: 0.7 mg/m2, Cyclic
     Route: 042
  2. VELCADE [Suspect]
     Dosage: 0.9 mg/m2, Cyclic
     Route: 042
  3. VELCADE [Suspect]
     Dosage: 1.1 mg/m2, Cyclic
     Route: 042
  4. VELCADE [Suspect]
     Dosage: 1.3 mg/m2, Cyclic
     Route: 042
  5. VORINOSTAT [Suspect]
     Indication: MULTIPLE MYELOMA
     Dosage: 200 mg, Cyclic
     Route: 048
  6. VORINOSTAT [Suspect]
     Dosage: 300 mg, Cyclic
     Route: 048
  7. VORINOSTAT [Suspect]
     Dosage: 400 mg, Cyclic
     Route: 048

REACTIONS (1)
  - Memory impairment [Unknown]
